FAERS Safety Report 8999291 (Version 1)
Quarter: 2013Q1

REPORT INFORMATION
  Report Type: Spontaneous
  Country: JP (occurrence: JP)
  Receive Date: 20130103
  Receipt Date: 20130103
  Transmission Date: 20140127
  Serious: Yes (Other)
  Sender: FDA-Public Use
  Company Number: JP-SANOFI-AVENTIS-2012SA095367

PATIENT
  Sex: 0

DRUGS (5)
  1. ONETAXOTERE [Suspect]
     Indication: LUNG NEOPLASM MALIGNANT
     Route: 042
  2. CARBOPLATIN [Concomitant]
     Indication: LUNG NEOPLASM MALIGNANT
  3. PACLITAXEL [Concomitant]
     Indication: LUNG NEOPLASM MALIGNANT
  4. AVASTIN [Concomitant]
     Indication: LUNG NEOPLASM MALIGNANT
  5. ALIMTA [Concomitant]
     Indication: LUNG NEOPLASM MALIGNANT

REACTIONS (1)
  - Hepatic cirrhosis [Unknown]
